FAERS Safety Report 17216414 (Version 2)
Quarter: 2020Q1

REPORT INFORMATION
  Report Type: Spontaneous
  Country: DE (occurrence: DE)
  Receive Date: 20191230
  Receipt Date: 20200116
  Transmission Date: 20200409
  Serious: Yes (Other)
  Sender: FDA-Public Use
  Company Number: DE-BEH-2019111024

PATIENT
  Age: 61 Year
  Sex: Female
  Weight: 90 kg

DRUGS (2)
  1. PRIVIGEN [Suspect]
     Active Substance: HUMAN IMMUNOGLOBULIN G
     Dosage: 10 GRAM, EVERY 4 WEEKS
     Route: 042
     Dates: start: 201812
  2. PRIVIGEN [Suspect]
     Active Substance: HUMAN IMMUNOGLOBULIN G
     Indication: IMMUNODEFICIENCY COMMON VARIABLE
     Dosage: 30 GRAM EVERY 3-4 WEEKS
     Route: 042
     Dates: start: 2014, end: 201810

REACTIONS (7)
  - Nephrotic syndrome [Recovered/Resolved]
  - Glomerulonephritis membranoproliferative [Recovered/Resolved]
  - Transfusion-related immunomodulation reaction [Recovered/Resolved]
  - Light chain analysis increased [Recovered/Resolved]
  - Proteinuria [Recovered/Resolved]
  - Blood immunoglobulin M increased [Recovered/Resolved]
  - Hypergammaglobulinaemia benign monoclonal [Recovered/Resolved]

NARRATIVE: CASE EVENT DATE: 201706
